FAERS Safety Report 17184311 (Version 2)
Quarter: 2020Q1

REPORT INFORMATION
  Report Type: Report from Study
  Country: CA (occurrence: CA)
  Receive Date: 20191220
  Receipt Date: 20200217
  Transmission Date: 20200409
  Serious: Yes (Other)
  Sender: FDA-Public Use
  Company Number: CA-EMD SERONO-9135851

PATIENT
  Sex: Female

DRUGS (2)
  1. MAVENCLAD [Suspect]
     Active Substance: CLADRIBINE
     Indication: MULTIPLE SCLEROSIS
     Dosage: FIRST WEEK THERAPY
     Dates: start: 20190429
  2. MAVENCLAD [Suspect]
     Active Substance: CLADRIBINE
     Dosage: SECOND WEEK THERAPY
     Dates: end: 20190531

REACTIONS (5)
  - Abdominal pain [Not Recovered/Not Resolved]
  - Diverticulitis [Unknown]
  - Abdominal distension [Not Recovered/Not Resolved]
  - Appendicitis [Unknown]
  - Diarrhoea [Not Recovered/Not Resolved]

NARRATIVE: CASE EVENT DATE: 2019
